FAERS Safety Report 4693403-1 (Version None)
Quarter: 2005Q2

REPORT INFORMATION
  Report Type: 
  Country: None (occurrence: None)
  Receive Date: 20050615
  Receipt Date: 20050526
  Transmission Date: 20051028
  Serious: Yes (Hospitalization, Other)
  Sender: FDA-Public Use
  Company Number: USA050599160

PATIENT
  Age: 62 Year
  Sex: Female
  Weight: 96 kg

DRUGS (3)
  1. HUMULIN 70/30 [Suspect]
     Indication: DIABETES MELLITUS
     Dosage: 55 U DAY
     Dates: start: 19840101
  2. HUMULIN R [Suspect]
     Indication: DIABETES MELLITUS
     Dates: start: 20040101
  3. NOVOLOG [Concomitant]

REACTIONS (10)
  - ATRIAL FIBRILLATION [None]
  - BLOOD GLUCOSE INCREASED [None]
  - CARDIAC FAILURE CONGESTIVE [None]
  - COLITIS [None]
  - CORONARY ARTERY DISEASE [None]
  - IMPAIRED HEALING [None]
  - INJECTION SITE HAEMORRHAGE [None]
  - INTERMITTENT CLAUDICATION [None]
  - PHARMACEUTICAL PRODUCT COMPLAINT [None]
  - SKIN ULCER [None]
